FAERS Safety Report 5899454-3 (Version None)
Quarter: 2008Q3

REPORT INFORMATION
  Report Type: 
  Country: None (occurrence: None)
  Receive Date: 20080926
  Receipt Date: 20080915
  Transmission Date: 20090109
  Serious: Yes (Other)
  Sender: FDA-Public Use
  Company Number: BR-RANBAXY-2008R5-18063

PATIENT

DRUGS (3)
  1. AMOXICILLIN + CLAVULANATE POTASSIUM [Suspect]
     Indication: INFECTION
     Dosage: 500MG
     Route: 048
     Dates: start: 20080914
  2. AMOXICILLIN + CLAVULANATE POTASSIUM [Suspect]
     Dosage: 125MG
     Route: 048
     Dates: start: 20080914
  3. PHENOBARBITAL TAB [Concomitant]
     Indication: DRUG USE FOR UNKNOWN INDICATION
     Dosage: UNK, U NK

REACTIONS (4)
  - ERYTHEMA [None]
  - LIP SWELLING [None]
  - SKIN DISORDER [None]
  - SKIN EXFOLIATION [None]
